FAERS Safety Report 20004589 (Version 7)
Quarter: 2025Q2

REPORT INFORMATION
  Report Type: Spontaneous
  Country: US (occurrence: US)
  Receive Date: 20211027
  Receipt Date: 20250425
  Transmission Date: 20250717
  Serious: No
  Sender: PFIZER
  Company Number: US-PFIZER INC-2021882379

PATIENT
  Age: 47 Year
  Sex: Male

DRUGS (11)
  1. XELJANZ [Suspect]
     Active Substance: TOFACITINIB CITRATE
     Indication: Colitis ulcerative
     Route: 048
     Dates: start: 2020
  2. XELJANZ [Suspect]
     Active Substance: TOFACITINIB CITRATE
     Indication: Prophylaxis
     Dosage: 10 MG, 2X/DAY
     Route: 048
     Dates: start: 20210605
  3. XELJANZ [Suspect]
     Active Substance: TOFACITINIB CITRATE
     Dosage: 5 MG, 2X/DAY
     Route: 048
     Dates: start: 202108
  4. XELJANZ [Suspect]
     Active Substance: TOFACITINIB CITRATE
     Dosage: 10 MG, 2X/DAY
     Route: 048
     Dates: start: 20211009
  5. XELJANZ [Suspect]
     Active Substance: TOFACITINIB CITRATE
     Dosage: 10 MG, 2X/DAY
     Route: 048
     Dates: start: 202110
  6. XELJANZ [Suspect]
     Active Substance: TOFACITINIB CITRATE
     Dosage: 15 MG, DAILY (10 MG, EVERY MORNING + 5 MG, EVERY EVENING)
     Route: 048
     Dates: end: 2024
  7. XELJANZ [Suspect]
     Active Substance: TOFACITINIB CITRATE
     Dosage: 10 MG, 1X/DAY
     Route: 048
     Dates: start: 2024, end: 2024
  8. XELJANZ [Suspect]
     Active Substance: TOFACITINIB CITRATE
     Dosage: 15 MG, DAILY (10 MG (LOT:LD0761) EVERY MORNING + 5 (LOT: LG6286) MG EVERY EVENING)
     Route: 048
     Dates: start: 2024
  9. XELJANZ [Suspect]
     Active Substance: TOFACITINIB CITRATE
     Dosage: 15 MG, DAILY (10 MG (LOT:LD0761) EVERY MORNING + 5 (LOT: LG6286) MG EVERY EVENING)
     Route: 048
     Dates: start: 2024
  10. XELJANZ [Suspect]
     Active Substance: TOFACITINIB CITRATE
     Dosage: 15 MG, DAILY (10 MG (LOT: LM4959) EVERY MORNING + 5 (LOT: LG5064) MG EVERY EVENING)
     Route: 048
  11. XELJANZ [Suspect]
     Active Substance: TOFACITINIB CITRATE
     Dosage: 15 MG, DAILY (10 MG (LOT: LM4959) EVERY MORNING + 5 (LOT: LG5064) MG EVERY EVENING)
     Route: 048

REACTIONS (7)
  - Condition aggravated [Recovering/Resolving]
  - Blood cholesterol increased [Unknown]
  - Influenza [Unknown]
  - Off label use [Unknown]
  - Product dose omission in error [Unknown]
  - Intentional product use issue [Unknown]
  - Drug effective for unapproved indication [Unknown]

NARRATIVE: CASE EVENT DATE: 20210601
